FAERS Safety Report 11296589 (Version 1)
Quarter: 2015Q3

REPORT INFORMATION
  Report Type: Spontaneous
  Country: US (occurrence: US)
  Receive Date: 20150722
  Receipt Date: 20150722
  Transmission Date: 20151125
  Serious: Yes (Other)
  Sender: FDA-Public Use
  Company Number: US-ELI_LILLY_AND_COMPANY-US201005000968

PATIENT
  Age: 65 Year
  Sex: Female
  Weight: 90.7 kg

DRUGS (1)
  1. EFFIENT [Suspect]
     Active Substance: PRASUGREL HYDROCHLORIDE
     Indication: STENT PLACEMENT
     Dosage: 60 MG, UNK
     Route: 048
     Dates: start: 20100429

REACTIONS (1)
  - Urinary bladder haemorrhage [Recovered/Resolved]
